FAERS Safety Report 8652490 (Version 4)
Quarter: 2012Q4

REPORT INFORMATION
  Report Type: 
  Country: US (occurrence: US)
  Receive Date: 20120706
  Receipt Date: 20121017
  Transmission Date: 20130627
  Serious: Yes (Hospitalization)
  Sender: FDA-Public Use
  Company Number: US-VIROPHARMA INCORPORATED-20120628CINRY3097

PATIENT
  Age: 43 None
  Sex: Female

DRUGS (4)
  1. CINRYZE (C1 ESTERASE INHIBITOR (HUMAN)) [Suspect]
     Indication: HEREDITARY ANGIOEDEMA
     Dates: start: 201108
  2. CINRYZE (C1 ESTERASE INHIBITOR (HUMAN)) [Suspect]
  3. CINRYZE (C1 ESTERASE INHIBITOR (HUMAN)) [Suspect]
     Dates: start: 201207
  4. UNSPECIFIED INGREDIENT [Suspect]
     Indication: PAIN
     Dosage: UNKNOWN

REACTIONS (10)
  - Pneumonia [Unknown]
  - Endocarditis [Recovered/Resolved]
  - Intestinal obstruction [Unknown]
  - Lung disorder [Recovered/Resolved]
  - Renal failure [Unknown]
  - Angioedema [Not Recovered/Not Resolved]
  - Hereditary angioedema [Unknown]
  - Device related infection [Unknown]
  - Therapy regimen changed [Not Recovered/Not Resolved]
  - Inappropriate schedule of drug administration [Not Recovered/Not Resolved]
